FAERS Safety Report 4618597-5 (Version None)
Quarter: 2005Q1

REPORT INFORMATION
  Report Type: 
  Country: None (occurrence: None)
  Receive Date: 20050323
  Receipt Date: 20050308
  Transmission Date: 20050727
  Serious: Yes (Death)
  Sender: FDA-Public Use
  Company Number: EWC050242826

PATIENT
  Sex: Female

DRUGS (2)
  1. GEMCITABINE HYDROCHLORIDE-IV (GEMCITABINE) [Suspect]
     Indication: BREAST CANCER METASTATIC
     Dosage: 1140 MG/2 OTHER
     Route: 050
     Dates: start: 20041125
  2. NAVELBINE [Suspect]
     Indication: BREAST CANCER METASTATIC
     Dosage: 36 MG/2 OTHER
     Route: 050
     Dates: start: 20041125

REACTIONS (10)
  - BILIRUBIN CONJUGATED INCREASED [None]
  - BLOOD BILIRUBIN INCREASED [None]
  - BREAST CANCER METASTATIC [None]
  - COMA HEPATIC [None]
  - DISEASE PROGRESSION [None]
  - DRUG EFFECT DECREASED [None]
  - GENERAL PHYSICAL HEALTH DETERIORATION [None]
  - JAUNDICE [None]
  - PERFORMANCE STATUS DECREASED [None]
  - TRANSAMINASES INCREASED [None]
